APPROVED DRUG PRODUCT: CAMILA
Active Ingredient: NORETHINDRONE
Strength: 0.35MG
Dosage Form/Route: TABLET;ORAL-28
Application: A076177 | Product #001 | TE Code: AB1
Applicant: DR REDDYS LABORATORIES SA
Approved: Oct 21, 2002 | RLD: No | RS: No | Type: RX